FAERS Safety Report 7359264-7 (Version None)
Quarter: 2011Q1

REPORT INFORMATION
  Report Type: 
  Country: None (occurrence: None)
  Receive Date: 20110317
  Receipt Date: 20110304
  Transmission Date: 20110831
  Serious: Yes (Other)
  Sender: FDA-Public Use
  Company Number: PHHY2011US18643

PATIENT
  Age: 73 Year
  Sex: Male

DRUGS (2)
  1. RECLAST [Suspect]
     Dosage: 5 MG,
     Dates: start: 20110303
  2. SOLU-MEDROL [Concomitant]
     Dosage: 40 MG,

REACTIONS (5)
  - LOSS OF CONSCIOUSNESS [None]
  - FEELING HOT [None]
  - VOMITING [None]
  - NAUSEA [None]
  - FLUSHING [None]
